FAERS Safety Report 10935439 (Version 1)
Quarter: 2015Q1

REPORT INFORMATION
  Report Type: Spontaneous
  Country: CA (occurrence: CA)
  Receive Date: 20150320
  Receipt Date: 20150320
  Transmission Date: 20150721
  Serious: Yes (Other)
  Sender: FDA-Public Use
  Company Number: CA-GLAXOSMITHKLINE-CA2015GSK036694

PATIENT
  Age: 38 Year
  Sex: Female

DRUGS (3)
  1. DICLECTIN [Suspect]
     Active Substance: DOXYLAMINE\PYRIDOXINE
     Indication: PRODUCT USED FOR UNKNOWN INDICATION
  2. ZOFRAN [Suspect]
     Active Substance: ONDANSETRON HYDROCHLORIDE
     Indication: VOMITING IN PREGNANCY
  3. ZOFRAN [Suspect]
     Active Substance: ONDANSETRON HYDROCHLORIDE
     Indication: VOMITING IN PREGNANCY
     Dosage: UNK

REACTIONS (7)
  - Dizziness [Unknown]
  - Abortion spontaneous [Unknown]
  - Heart rate irregular [Unknown]
  - Confusional state [Unknown]
  - Off label use [Unknown]
  - Exposure during pregnancy [Unknown]
  - Feeling hot [Unknown]
